FAERS Safety Report 6542473-4 (Version None)
Quarter: 2010Q1

REPORT INFORMATION
  Report Type: 
  Country: None (occurrence: None)
  Receive Date: 20100119
  Receipt Date: 20100115
  Transmission Date: 20100710
  Serious: Yes (Hospitalization)
  Sender: FDA-Public Use
  Company Number: US-ELI_LILLY_AND_COMPANY-US200912003993

PATIENT
  Sex: Female
  Weight: 82.54 kg

DRUGS (6)
  1. BYETTA [Suspect]
     Indication: TYPE 2 DIABETES MELLITUS
     Dosage: 5 UG, 2/D
     Dates: start: 20090301, end: 20090401
  2. BYETTA [Suspect]
     Dosage: 10 UG, 2/D
     Dates: start: 20090401, end: 20090901
  3. BYETTA [Suspect]
     Dosage: 10 UG, 2/D
     Dates: start: 20090901
  4. METFORMIN HCL [Concomitant]
     Indication: TYPE 2 DIABETES MELLITUS
     Dosage: 1000 MG, 2/D
  5. GLYBURIDE [Concomitant]
     Indication: TYPE 2 DIABETES MELLITUS
     Dosage: 5 MG, 2/D
  6. FUROSEMIDE [Concomitant]
     Indication: FLUID RETENTION
     Dosage: 40 MG, DAILY (1/D)

REACTIONS (6)
  - BLOOD GLUCOSE INCREASED [None]
  - COLON INJURY [None]
  - DEVICE MISUSE [None]
  - DRUG DOSE OMISSION [None]
  - HERNIA [None]
  - WEIGHT INCREASED [None]
